FAERS Safety Report 5584595-0 (Version None)
Quarter: 2008Q1

REPORT INFORMATION
  Report Type: 
  Country: None (occurrence: None)
  Receive Date: 20080108
  Receipt Date: 20071227
  Transmission Date: 20080703
  Serious: Yes (Death, Life-Threatening, Hospitalization)
  Sender: FDA-Public Use
  Company Number: US-AMGEN-US204219

PATIENT
  Sex: Female

DRUGS (7)
  1. PANITUMUMAB [Suspect]
     Indication: COLORECTAL CANCER
     Route: 042
     Dates: start: 20060926, end: 20061205
  2. PANITUMUMAB [Suspect]
     Route: 042
     Dates: start: 20071205
  3. IRINOTECAN [Concomitant]
     Route: 042
     Dates: end: 20061205
  4. FOLINIC ACID [Concomitant]
     Route: 042
     Dates: end: 20061205
  5. FLUOROURACIL [Concomitant]
     Route: 042
     Dates: end: 20061205
  6. AVASTIN [Concomitant]
     Route: 042
     Dates: end: 20061205
  7. NEUPOGEN [Concomitant]
     Route: 065

REACTIONS (3)
  - BACTERIAL INFECTION [None]
  - FEBRILE NEUTROPENIA [None]
  - SEPTIC SHOCK [None]
